FAERS Safety Report 6187621-3 (Version None)
Quarter: 2009Q2

REPORT INFORMATION
  Report Type: 
  Country: None (occurrence: None)
  Receive Date: 20090511
  Receipt Date: 20090428
  Transmission Date: 20091009
  Serious: Yes (Hospitalization)
  Sender: FDA-Public Use
  Company Number: 8045602

PATIENT
  Age: 6 Year
  Sex: Male

DRUGS (8)
  1. LEVETIRACETAM [Suspect]
     Indication: CONVULSION
     Dosage: 340 MG 2/D PO
     Route: 048
  2. CEFTRIAXONE [Concomitant]
  3. EPINEPHRINE [Concomitant]
  4. NOREPINEPHRINE BITARTRATE [Concomitant]
  5. PHENYLEPHEDRINE [Concomitant]
  6. STEROIDS [Concomitant]
  7. PHENYTOIN [Concomitant]
  8. VALPROIC ACID [Concomitant]

REACTIONS (7)
  - ABNORMAL BEHAVIOUR [None]
  - AGITATION [None]
  - CONFUSIONAL STATE [None]
  - CRYING [None]
  - DELIRIUM [None]
  - STEREOTYPY [None]
  - UNRESPONSIVE TO STIMULI [None]
